FAERS Safety Report 9300103 (Version 2)
Quarter: 2013Q2

REPORT INFORMATION
  Report Type: Spontaneous
  Country: US (occurrence: US)
  Receive Date: 20130521
  Receipt Date: 20130521
  Transmission Date: 20140414
  Serious: No
  Sender: FDA-Public Use
  Company Number: US-MYLANLABS-2012S1019906

PATIENT
  Age: 67 Year
  Sex: Female

DRUGS (2)
  1. AMITRIPTYLINE HYDROCHLORIDE TABLETS, USP [Suspect]
     Indication: NEUROPATHY PERIPHERAL
     Route: 048
     Dates: start: 201207, end: 201209
  2. AMITRIPTYLINE HYDROCHLORIDE TABLETS, USP [Suspect]
     Indication: NEUROPATHY PERIPHERAL
     Route: 048
     Dates: start: 201210

REACTIONS (2)
  - Rash pruritic [Recovered/Resolved]
  - Pain [Recovered/Resolved]
